FAERS Safety Report 21173278 (Version 1)
Quarter: 2022Q3

REPORT INFORMATION
  Report Type: Spontaneous
  Country: TW (occurrence: TW)
  Receive Date: 20220804
  Receipt Date: 20220804
  Transmission Date: 20221027
  Serious: Yes (Other)
  Sender: FDA-Public Use
  Company Number: TW-PFIZER INC-202201023987

PATIENT
  Sex: Female

DRUGS (2)
  1. NORVASC [Suspect]
     Active Substance: AMLODIPINE BESYLATE
     Dosage: 5 MG, 1X/DAY
     Route: 048
  2. TENORMIN [Suspect]
     Active Substance: ATENOLOL
     Dosage: UNK
     Route: 048

REACTIONS (3)
  - Angina pectoris [Unknown]
  - Product packaging difficult to open [Unknown]
  - Product complaint [Unknown]
